FAERS Safety Report 18662914 (Version 1)
Quarter: 2020Q4

REPORT INFORMATION
  Report Type: Spontaneous
  Country: US (occurrence: US)
  Receive Date: 20201224
  Receipt Date: 20201224
  Transmission Date: 20210114
  Serious: Yes (Other)
  Sender: FDA-Public Use
  Company Number: NVSC2020US340519

PATIENT
  Age: 72 Year
  Sex: Female

DRUGS (2)
  1. SECUKINUMAB. [Suspect]
     Active Substance: SECUKINUMAB
     Indication: PSORIATIC ARTHROPATHY
     Dosage: 300 MG, QW
     Route: 058
  2. SECUKINUMAB. [Suspect]
     Active Substance: SECUKINUMAB
     Dosage: 150 MG
     Route: 065

REACTIONS (1)
  - Inflammatory bowel disease [Recovering/Resolving]
